FAERS Safety Report 16105163 (Version 7)
Quarter: 2019Q4

REPORT INFORMATION
  Report Type: Spontaneous
  Country: US (occurrence: US)
  Receive Date: 20190322
  Receipt Date: 20191111
  Transmission Date: 20200122
  Serious: Yes (Congenital Anomaly, Other)
  Sender: FDA-Public Use
  Company Number: PHEH2019US012562

PATIENT
  Sex: Female

DRUGS (2)
  1. ZOFRAN [Suspect]
     Active Substance: ONDANSETRON HYDROCHLORIDE
     Indication: FOETAL EXPOSURE DURING PREGNANCY
     Dosage: MOTHER^S DOSE: 04 MG, UNK
     Route: 064
  2. ZOFRAN ODT [Suspect]
     Active Substance: ONDANSETRON HYDROCHLORIDE
     Indication: FOETAL EXPOSURE DURING PREGNANCY
     Dosage: MOTHER^S DOSE: 08 MG, PRN
     Route: 064

REACTIONS (29)
  - Aortic valve incompetence [Unknown]
  - Mitral valve incompetence [Unknown]
  - Ventricular septal defect [Unknown]
  - Pilonidal cyst [Unknown]
  - Patent ductus arteriosus [Unknown]
  - Foetal exposure during pregnancy [Unknown]
  - Right ventricular enlargement [Unknown]
  - Pyrexia [Unknown]
  - Pulmonary valve incompetence [Unknown]
  - Tricuspid valve incompetence [Unknown]
  - Acute sinusitis [Unknown]
  - Cardiomegaly [Unknown]
  - Injury [Unknown]
  - Ill-defined disorder [Unknown]
  - Fallot^s tetralogy [Unknown]
  - Heart disease congenital [Unknown]
  - Haemangioma [Unknown]
  - Upper respiratory tract infection [Unknown]
  - Congenital skin dimples [Unknown]
  - Pulmonary valve stenosis [Unknown]
  - Right ventricular hypertrophy [Unknown]
  - Cough [Unknown]
  - Atrial septal defect [Unknown]
  - Macrocephaly [Unknown]
  - Takayasu^s arteritis [Unknown]
  - Right ventricular dilatation [Unknown]
  - Constipation [Unknown]
  - Headache [Unknown]
  - Cardiac murmur [Unknown]
